FAERS Safety Report 21134936 (Version 1)
Quarter: 2022Q3

REPORT INFORMATION
  Report Type: Spontaneous
  Country: US (occurrence: US)
  Receive Date: 20220727
  Receipt Date: 20220727
  Transmission Date: 20221027
  Serious: No
  Sender: FDA-Public Use
  Company Number: US-TEVA-2022-US-2054416

PATIENT
  Sex: Female

DRUGS (1)
  1. SPRINTEC [Suspect]
     Active Substance: ETHINYL ESTRADIOL\NORGESTIMATE
     Indication: Product used for unknown indication
     Dosage: 0.25-0.035 MG-MG
     Route: 065

REACTIONS (4)
  - Muscle spasms [Unknown]
  - Abdominal distension [Unknown]
  - Abdominal distension [Unknown]
  - Diarrhoea [Unknown]
